FAERS Safety Report 4619857-4 (Version None)
Quarter: 2005Q1

REPORT INFORMATION
  Report Type: 
  Country: None (occurrence: None)
  Receive Date: 20050328
  Receipt Date: 20050316
  Transmission Date: 20050727
  Serious: Yes (Hospitalization)
  Sender: FDA-Public Use
  Company Number: JP-JNJFOC-20050305361

PATIENT
  Sex: Female
  Weight: 45.1 kg

DRUGS (62)
  1. REMICADE [Suspect]
     Indication: CROHN'S DISEASE
     Route: 042
  2. ELENTAL [Concomitant]
     Route: 049
  3. ELENTAL [Concomitant]
     Indication: CROHN'S DISEASE
     Route: 049
  4. RACOL [Concomitant]
     Indication: CROHN'S DISEASE
     Route: 049
  5. YODEL S [Concomitant]
     Route: 049
  6. VOLTAREN [Concomitant]
     Indication: BACK PAIN
  7. ENSURE [Concomitant]
     Route: 049
  8. ENSURE [Concomitant]
     Route: 049
  9. ENSURE [Concomitant]
     Indication: CROHN'S DISEASE
     Route: 049
  10. LOXONIN [Concomitant]
     Indication: BACK PAIN
     Route: 049
  11. ISODINE GARGLE [Concomitant]
  12. GASTER [Concomitant]
     Route: 049
  13. ALTAT [Concomitant]
     Route: 049
  14. SELBEX [Concomitant]
     Route: 049
  15. NERIPROCT [Concomitant]
  16. NERIPROCT [Concomitant]
  17. DERMOVATE [Concomitant]
  18. ANDERM [Concomitant]
  19. BISOLVON [Concomitant]
  20. VENTOLIN [Concomitant]
  21. PL [Concomitant]
     Route: 049
  22. RESTAMIN [Concomitant]
     Route: 049
  23. NASEA [Concomitant]
     Route: 049
  24. LAC B [Concomitant]
     Route: 049
  25. CRAVIT [Concomitant]
     Route: 049
  26. VISCORIN [Concomitant]
     Route: 042
  27. POLARAMIN [Concomitant]
     Route: 042
  28. PRIMPERAN TAB [Concomitant]
     Route: 042
  29. ASPARA K [Concomitant]
     Route: 042
  30. PACLITAXEL [Concomitant]
     Route: 042
  31. CARBOPLATIN [Concomitant]
     Route: 042
  32. DECADRON [Concomitant]
     Route: 042
  33. CEFAMEZIN [Concomitant]
     Route: 042
  34. NEU-UP [Concomitant]
     Route: 058
  35. STRONGER NEO-MINOPHAGEN C [Concomitant]
     Route: 042
  36. STRONGER NEO-MINOPHAGEN C [Concomitant]
     Route: 042
  37. STRONGER NEO-MINOPHAGEN C [Concomitant]
     Route: 042
  38. PANTHENOL [Concomitant]
     Route: 042
  39. ROPION [Concomitant]
     Route: 042
  40. FLUMARIN [Concomitant]
     Route: 042
  41. BLUTAL [Concomitant]
     Route: 042
  42. BLUTAL [Concomitant]
     Route: 042
  43. KYTRIL [Concomitant]
     Route: 042
  44. MAXIPIME [Concomitant]
     Route: 042
  45. BIOFERMIN-R [Concomitant]
     Route: 049
  46. BIOFERMIN-R [Concomitant]
     Route: 049
  47. BIOFERMIN-R [Concomitant]
     Indication: CROHN'S DISEASE
     Route: 049
  48. POSTERISAN FORTE [Concomitant]
  49. POSTERISAN FORTE [Concomitant]
  50. POSTERISAN FORTE [Concomitant]
  51. POSTERISAN FORTE [Concomitant]
  52. POSTERISAN FORTE [Concomitant]
  53. FERROMIA [Concomitant]
     Route: 049
  54. MOHRUS TAPE [Concomitant]
     Indication: BACK PAIN
  55. OMEPRAL [Concomitant]
     Route: 049
  56. BUFFERIN [Concomitant]
     Route: 049
  57. BUFFERIN [Concomitant]
     Route: 049
  58. BUFFERIN [Concomitant]
     Indication: HEADACHE
     Route: 049
  59. KENACORT-A [Concomitant]
  60. ROCAIN [Concomitant]
  61. TPN [Concomitant]
  62. ENTERAL NUTRITION [Concomitant]

REACTIONS (2)
  - DRUG INEFFECTIVE [None]
  - OVARIAN CANCER [None]
